FAERS Safety Report 14700019 (Version 1)
Quarter: 2018Q1

REPORT INFORMATION
  Report Type: Spontaneous
  Country: US (occurrence: US)
  Receive Date: 20180330
  Receipt Date: 20180330
  Transmission Date: 20180509
  Serious: No
  Sender: FDA-Public Use
  Company Number: US-ZYDUS-018830

PATIENT
  Age: 2 Year
  Sex: Female
  Weight: 9.75 kg

DRUGS (3)
  1. OSELTAMIVIR/OSELTAMIVIR PHOSPHATE [Suspect]
     Active Substance: OSELTAMIVIR PHOSPHATE
     Indication: INFLUENZA
     Dosage: 6 MG/ML
     Route: 048
     Dates: start: 20180105, end: 20180108
  2. PARACETAMOL [Concomitant]
     Active Substance: ACETAMINOPHEN
     Indication: PYREXIA
     Dosage: TYLENOL SOLUTION, BY MOUTH ALTERNATING WITH IBUPROFEN EVERY 4 HRS WHEN FEVERISH FOR INFLUENZA.
     Route: 048
  3. IBUPROFEN. [Concomitant]
     Active Substance: IBUPROFEN
     Indication: PYREXIA
     Dosage: IBUPROFEN SOLUTION, BY MOUTH ALTERNATING WITH TYLENOL EVERY 4 HRS WHEN FEVERISH FOR INFLUENZA
     Route: 048

REACTIONS (3)
  - Product preparation error [Recovered/Resolved]
  - Diarrhoea [Recovered/Resolved]
  - Insomnia [Unknown]

NARRATIVE: CASE EVENT DATE: 20180105
